FAERS Safety Report 18132858 (Version 9)
Quarter: 2023Q4

REPORT INFORMATION
  Report Type: Spontaneous
  Country: US (occurrence: US)
  Receive Date: 20200811
  Receipt Date: 20231020
  Transmission Date: 20240109
  Serious: Yes (Hospitalization)
  Sender: FDA-Public Use
  Company Number: US-CELLTRION INC.-2020US025025

PATIENT

DRUGS (3)
  1. INFLECTRA [Suspect]
     Active Substance: INFLIXIMAB-DYYB
     Indication: Product used for unknown indication
     Dosage: 600 MG. FREQUENCY OF DOSE NOT PROVIDED.
     Route: 065
  2. INFLECTRA [Suspect]
     Active Substance: INFLIXIMAB-DYYB
     Dosage: 10 MG/KG, CYCLIC (PT WT =  110 KG), FREQUENCY: 7 WEEKS, QUANTITIY:11, REFIILS: 4
     Route: 065
  3. INFLECTRA [Suspect]
     Active Substance: INFLIXIMAB-DYYB
     Dosage: 11 VIALS 100 MG/20 ML DIRECTIONS: 1100 MG IV Q 6 WEEKS
     Route: 042

REACTIONS (2)
  - Illness [Unknown]
  - Unevaluable event [Unknown]
